FAERS Safety Report 12655721 (Version 1)
Quarter: 2016Q3

REPORT INFORMATION
  Report Type: Other
  Country: JP (occurrence: JP)
  Receive Date: 20160816
  Receipt Date: 20160816
  Transmission Date: 20161109
  Serious: Yes (Congenital Anomaly)
  Sender: FDA-Public Use
  Company Number: JP-CONCORDIA PHARMACEUTICALS INC.-CO-ZO-JP-2016-086

PATIENT
  Sex: 0

DRUGS (2)
  1. ZONISAMIDE. [Suspect]
     Active Substance: ZONISAMIDE
     Indication: FOETAL EXPOSURE DURING PREGNANCY
     Route: 064
  2. SODIUM VALPROATE [Suspect]
     Active Substance: VALPROATE SODIUM
     Indication: FOETAL EXPOSURE DURING PREGNANCY
     Route: 064

REACTIONS (3)
  - Intellectual disability [Not Recovered/Not Resolved]
  - Foetal exposure during pregnancy [Not Recovered/Not Resolved]
  - Spina bifida [Not Recovered/Not Resolved]
